FAERS Safety Report 13188875 (Version 1)
Quarter: 2017Q1

REPORT INFORMATION
  Report Type: Spontaneous
  Country: US (occurrence: US)
  Receive Date: 20170206
  Receipt Date: 20170206
  Transmission Date: 20170428
  Serious: No
  Sender: FDA-Public Use
  Company Number: US-GLAXOSMITHKLINE-US2017014934

PATIENT
  Sex: Male

DRUGS (3)
  1. BREO ELLIPTA [Suspect]
     Active Substance: FLUTICASONE FUROATE\VILANTEROL TRIFENATATE
     Indication: INCREASED UPPER AIRWAY SECRETION
     Dosage: 1 PUFF(S), BID
     Route: 055
     Dates: start: 20170201
  2. SYMBICORT [Suspect]
     Active Substance: BUDESONIDE\FORMOTEROL FUMARATE DIHYDRATE
     Indication: INCREASED UPPER AIRWAY SECRETION
  3. MUCINEX [Suspect]
     Active Substance: GUAIFENESIN
     Indication: INCREASED UPPER AIRWAY SECRETION

REACTIONS (3)
  - Drug ineffective [Unknown]
  - Prescribed overdose [Unknown]
  - Intercepted drug prescribing error [Unknown]

NARRATIVE: CASE EVENT DATE: 20170201
